FAERS Safety Report 10637351 (Version 1)
Quarter: 2014Q4

REPORT INFORMATION
  Report Type: Spontaneous
  Country: US (occurrence: None)
  Receive Date: 20141204
  Receipt Date: 20141204
  Transmission Date: 20150529
  Serious: Yes (Disabling, Other)
  Sender: FDA-Public Use
  Company Number: None

PATIENT
  Age: 60 Year
  Sex: Female
  Weight: 87.09 kg

DRUGS (2)
  1. LEVOFLOXACIN. [Suspect]
     Active Substance: LEVOFLOXACIN
     Indication: BRONCHITIS
     Dosage: 7 PILLS
     Route: 048
     Dates: start: 20130117, end: 20130122
  2. LEVOFLOXACIN. [Suspect]
     Active Substance: LEVOFLOXACIN
     Indication: SINUSITIS
     Dosage: 7 PILLS
     Route: 048
     Dates: start: 20130117, end: 20130122

REACTIONS (11)
  - Tendon pain [None]
  - Swelling [None]
  - Anger [None]
  - Neuropathy peripheral [None]
  - Paraesthesia [None]
  - Joint stiffness [None]
  - Diarrhoea [None]
  - Arthralgia [None]
  - Hypoaesthesia [None]
  - Burning sensation [None]
  - Tendon rupture [None]

NARRATIVE: CASE EVENT DATE: 20140121
